FAERS Safety Report 9774162 (Version 1)
Quarter: 2013Q4

REPORT INFORMATION
  Report Type: Spontaneous
  Country: FR (occurrence: FR)
  Receive Date: 20131220
  Receipt Date: 20131220
  Transmission Date: 20140711
  Serious: Yes (Hospitalization)
  Sender: FDA-Public Use
  Company Number: FR-BRISTOL-MYERS SQUIBB COMPANY-19913425

PATIENT
  Age: 62 Year
  Sex: Male

DRUGS (6)
  1. ABILIFY [Suspect]
     Indication: NEUROSIS
     Route: 048
     Dates: start: 20131105
  2. TERCIAN [Suspect]
     Indication: NEUROSIS
     Route: 048
     Dates: start: 20131105
  3. TERALITHE [Concomitant]
  4. MOGADON [Concomitant]
  5. LEXOMIL [Concomitant]
  6. FENOFIBRATE [Concomitant]

REACTIONS (3)
  - Pulmonary embolism [Recovered/Resolved]
  - Thrombophlebitis superficial [Recovered/Resolved]
  - Off label use [Unknown]
